FAERS Safety Report 9579344 (Version 1)
Quarter: 2013Q4

REPORT INFORMATION
  Report Type: Spontaneous
  Country: US (occurrence: US)
  Receive Date: 20131001
  Receipt Date: 20131001
  Transmission Date: 20140711
  Serious: No
  Sender: FDA-Public Use
  Company Number: US-AMGEN-USASP2013017385

PATIENT
  Age: 57 Year
  Sex: Female
  Weight: 113.38 kg

DRUGS (19)
  1. ENBREL [Suspect]
     Indication: PRODUCT USED FOR UNKNOWN INDICATION
     Dosage: 50 MG, QWK
     Route: 058
  2. HUMIRA [Concomitant]
     Indication: RHEUMATOID ARTHRITIS
     Dosage: 40 MG/0.8
  3. HUMIRA [Concomitant]
     Indication: PSORIATIC ARTHROPATHY
  4. TRAMADOL HCL [Concomitant]
     Dosage: 50 MG, UNK
  5. LISINOPRIL [Concomitant]
     Dosage: 10 MG, UNK
  6. METHOTREXATE [Concomitant]
     Dosage: 2.5 MG, UNK
  7. COUMADIN                           /00014802/ [Concomitant]
     Dosage: 1 MG, UNK
  8. FOLIC ACID [Concomitant]
     Dosage: 1 MG, UNK
  9. ALDACTAZIDE [Concomitant]
     Dosage: 25/25
  10. SYNTHROID [Concomitant]
     Dosage: 100 MUG, UNK
  11. ADVAIR [Concomitant]
     Dosage: 100/50, AER
  12. PREDNISONE [Concomitant]
     Dosage: 1 MG, UNK
  13. SINGULAIR [Concomitant]
     Dosage: 10 MG, UNK
  14. VITAMIN D                          /00107901/ [Concomitant]
     Dosage: 1000 UNIT, UNK
  15. CALCIUM [Concomitant]
     Dosage: 500 MG, UNK
  16. TOPROL [Concomitant]
     Dosage: 100 MG, UNK
  17. LIPITOR [Concomitant]
     Dosage: 10 MG, UNK
  18. ASPIRIN [Concomitant]
     Dosage: 81 MG, UNK,ADULT
  19. SOMA [Concomitant]
     Dosage: 250 MG, UNK

REACTIONS (1)
  - Therapeutic response decreased [Recovered/Resolved]
